FAERS Safety Report 9870382 (Version 1)
Quarter: 2014Q1

REPORT INFORMATION
  Report Type: Spontaneous
  Country: US (occurrence: US)
  Receive Date: 20140205
  Receipt Date: 20140205
  Transmission Date: 20141002
  Serious: No
  Sender: FDA-Public Use
  Company Number: US-B.I. PHARMACEUTICALS,INC./RIDGEFIELD-2014-BI-04231BP

PATIENT
  Sex: Female

DRUGS (1)
  1. MICARDIS HCT TABLETS [Suspect]
     Indication: PRODUCT USED FOR UNKNOWN INDICATION
     Dosage: DOSE PER APPLICATION: 80 MG/25 MG,  DAILY DOSE: 80 MG/25 MG
     Route: 048
     Dates: start: 2002

REACTIONS (1)
  - Swollen tongue [Unknown]
